FAERS Safety Report 18675053 (Version 1)
Quarter: 2020Q4

REPORT INFORMATION
  Report Type: Spontaneous
  Country: US (occurrence: US)
  Receive Date: 20201229
  Receipt Date: 20201229
  Transmission Date: 20210114
  Serious: Yes (Other)
  Sender: FDA-Public Use
  Company Number: US-GLAXOSMITHKLINE-US2020254916

PATIENT
  Age: 83 Year
  Sex: Female

DRUGS (1)
  1. VOLTAREN ARTHRITIS PAIN [Suspect]
     Active Substance: DICLOFENAC SODIUM
     Indication: ARTHRITIS
     Dosage: UNK
     Dates: start: 20201208, end: 20201222

REACTIONS (6)
  - Haematochezia [Unknown]
  - Haematuria [Unknown]
  - Product use issue [Unknown]
  - Chromaturia [Unknown]
  - Faeces discoloured [Unknown]
  - Inappropriate schedule of product administration [Unknown]
